FAERS Safety Report 9697382 (Version 1)
Quarter: 2013Q4

REPORT INFORMATION
  Report Type: Spontaneous
  Country: US (occurrence: None)
  Receive Date: 20131119
  Receipt Date: 20131119
  Transmission Date: 20140711
  Serious: Yes (Hospitalization)
  Sender: FDA-Public Use
  Company Number: None

PATIENT
  Age: 30 Year
  Sex: Female
  Weight: 60 kg

DRUGS (1)
  1. LITHIUM [Suspect]
     Indication: DEPRESSION
     Dosage: MG PO
     Route: 048
     Dates: start: 20131104, end: 20131107

REACTIONS (4)
  - Anaphylactic reaction [None]
  - Wheezing [None]
  - Rash [None]
  - Cough [None]
